FAERS Safety Report 13845867 (Version 1)
Quarter: 2017Q3

REPORT INFORMATION
  Report Type: Spontaneous
  Country: US (occurrence: US)
  Receive Date: 20170808
  Receipt Date: 20170808
  Transmission Date: 20171127
  Serious: No
  Sender: FDA-Public Use
  Company Number: US-ROCHE-730217

PATIENT
  Sex: Female

DRUGS (1)
  1. BONIVA [Suspect]
     Active Substance: IBANDRONATE SODIUM
     Indication: OSTEOPOROSIS
     Route: 048

REACTIONS (5)
  - Nausea [Unknown]
  - Dysphagia [Unknown]
  - Dyspepsia [Unknown]
  - Regurgitation [Unknown]
  - Vomiting [Unknown]

NARRATIVE: CASE EVENT DATE: 20100914
